FAERS Safety Report 19260786 (Version 1)
Quarter: 2021Q2

REPORT INFORMATION
  Report Type: Spontaneous
  Country: US (occurrence: US)
  Receive Date: 20210515
  Receipt Date: 20210515
  Transmission Date: 20210717
  Serious: Yes (Death, Other)
  Sender: FDA-Public Use
  Company Number: US-DRREDDYS-USA/USA/21/0135380

PATIENT
  Age: 46 Year
  Sex: Male

DRUGS (1)
  1. MELPHALAN HYDROCHLORIDE FOR INJECTION [Suspect]
     Active Substance: MELPHALAN HYDROCHLORIDE
     Indication: UVEAL MELANOMA
     Dosage: 4 CYCLES FOR 6 MONTH PERIOD.

REACTIONS (2)
  - Product use in unapproved indication [Unknown]
  - Acute hepatic failure [Fatal]
